FAERS Safety Report 15560427 (Version 1)
Quarter: 2018Q4

REPORT INFORMATION
  Report Type: Report from Study
  Country: US (occurrence: US)
  Receive Date: 20181029
  Receipt Date: 20181029
  Transmission Date: 20190205
  Serious: Yes (Other)
  Sender: FDA-Public Use
  Company Number: US-UCBSA-2018038153

PATIENT

DRUGS (2)
  1. LAMICTAL [Concomitant]
     Active Substance: LAMOTRIGINE
     Indication: TEMPORAL LOBE EPILEPSY
     Dosage: UNK
  2. LEVETIRACETAM. [Suspect]
     Active Substance: LEVETIRACETAM
     Indication: SIMPLE PARTIAL SEIZURES
     Dosage: UNK

REACTIONS (7)
  - Insomnia [Unknown]
  - Disturbance in attention [Unknown]
  - Fatigue [Unknown]
  - Memory impairment [Unknown]
  - Partial seizures [Unknown]
  - Dizziness [Unknown]
  - Anxiety [Unknown]
